FAERS Safety Report 7853404-9 (Version None)
Quarter: 2011Q4

REPORT INFORMATION
  Report Type: 
  Country: None (occurrence: None)
  Receive Date: 20111026
  Receipt Date: 20111018
  Transmission Date: 20120403
  Serious: Yes (Hospitalization)
  Sender: FDA-Public Use
  Company Number: US-BAYER-2011-011317

PATIENT
  Age: 17 Year
  Sex: Female
  Weight: 118 kg

DRUGS (6)
  1. YAZ [Suspect]
  2. YASMIN [Suspect]
     Indication: PREMENSTRUAL SYNDROME
     Dosage: UNK
     Dates: start: 20080301, end: 20090113
  3. YAZ [Suspect]
     Indication: PREMENSTRUAL SYNDROME
     Dosage: UNK
     Dates: start: 20080301, end: 20090113
  4. XOPENEX [Concomitant]
     Dosage: UNK
     Dates: start: 20070101
  5. YASMIN [Suspect]
  6. ALBUTEROL [Concomitant]
     Dosage: UNK
     Dates: start: 20070101

REACTIONS (2)
  - PAIN [None]
  - PULMONARY EMBOLISM [None]
